FAERS Safety Report 20297074 (Version 4)
Quarter: 2022Q2

REPORT INFORMATION
  Report Type: Spontaneous
  Country: JP (occurrence: JP)
  Receive Date: 20220105
  Receipt Date: 20220515
  Transmission Date: 20220721
  Serious: Yes (Hospitalization, Other)
  Sender: FDA-Public Use
  Company Number: JP-BRISTOL-MYERS SQUIBB COMPANY-BMS-2021-073790

PATIENT
  Age: 61 Year
  Sex: Male
  Weight: 82.9 kg

DRUGS (26)
  1. YERVOY [Suspect]
     Active Substance: IPILIMUMAB
     Indication: Malignant melanoma
     Dosage: 250 MILLIGRAM [3 MG/KG], Q3W
     Route: 041
     Dates: start: 20210518, end: 20210608
  2. OPDIVO [Suspect]
     Active Substance: NIVOLUMAB
     Indication: Malignant melanoma
     Dosage: 80 MILLIGRAM, Q3WK
     Route: 041
     Dates: start: 20210518, end: 20210608
  3. LOXOPROFEN SODIUM [Suspect]
     Active Substance: LOXOPROFEN SODIUM
     Indication: Pain
     Dosage: 60 MILLIGRAM, TID
     Route: 048
     Dates: start: 20210520
  4. LOXOPROFEN SODIUM [Suspect]
     Active Substance: LOXOPROFEN SODIUM
     Indication: Prophylaxis
     Dosage: UNK
     Route: 048
     Dates: start: 20210525
  5. LOXOPROFEN SODIUM [Suspect]
     Active Substance: LOXOPROFEN SODIUM
     Dosage: UNK
     Route: 048
     Dates: start: 20210608
  6. SOLU-MEDROL [Suspect]
     Active Substance: METHYLPREDNISOLONE SODIUM SUCCINATE
     Indication: Interstitial lung disease
     Dosage: 1000 MILLIGRAM
     Route: 065
     Dates: start: 20210629, end: 20210701
  7. SOLU-MEDROL [Suspect]
     Active Substance: METHYLPREDNISOLONE SODIUM SUCCINATE
     Indication: Adrenocorticotropic hormone deficiency
  8. PREDONINE [Suspect]
     Active Substance: PREDNISOLONE
     Indication: Adrenocorticotropic hormone deficiency
     Dosage: 80 MILLIGRAM, QD
     Route: 048
     Dates: start: 20210702, end: 20210708
  9. PREDONINE [Suspect]
     Active Substance: PREDNISOLONE
     Dosage: 60 MILLIGRAM, QD
     Route: 048
     Dates: start: 20210709, end: 20210713
  10. PREDONINE [Suspect]
     Active Substance: PREDNISOLONE
     Dosage: 40 MILLIGRAM, QD
     Route: 048
     Dates: start: 20210714, end: 20210726
  11. PREDONINE [Suspect]
     Active Substance: PREDNISOLONE
     Dosage: 35 MILLIGRAM, QD
     Route: 048
     Dates: start: 20210727, end: 20210802
  12. PREDONINE [Suspect]
     Active Substance: PREDNISOLONE
     Dosage: 30 MILLIGRAM, QD
     Route: 048
     Dates: start: 20210803, end: 20210809
  13. PREDONINE [Suspect]
     Active Substance: PREDNISOLONE
     Dosage: 25 MILLIGRAM, QD
     Route: 048
     Dates: start: 20210810, end: 20210816
  14. PREDONINE [Suspect]
     Active Substance: PREDNISOLONE
     Dosage: 20 MILLIGRAM, QD
     Route: 048
     Dates: start: 20210817, end: 20210906
  15. PREDONINE [Suspect]
     Active Substance: PREDNISOLONE
     Dosage: 15 MILLIGRAM, QD
     Route: 048
     Dates: start: 20210907, end: 20210913
  16. PREDONINE [Suspect]
     Active Substance: PREDNISOLONE
     Dosage: 10 MILLIGRAM, QD
     Route: 048
     Dates: start: 20210914, end: 20210920
  17. PREDONINE [Suspect]
     Active Substance: PREDNISOLONE
     Dosage: 5 MILLIGRAM, QD
     Route: 048
     Dates: start: 20210921, end: 20211004
  18. PREDONINE [Suspect]
     Active Substance: PREDNISOLONE
     Dosage: 5 MG, QOD (MON, WED, AND FRI)
     Route: 048
     Dates: start: 20211005, end: 20211019
  19. ICOSAPENT ETHYL [Concomitant]
     Active Substance: ICOSAPENT ETHYL
     Indication: Product used for unknown indication
     Dosage: 600 MILLIGRAM, Q8H
     Route: 048
     Dates: start: 20210518
  20. ELIQUIS [Concomitant]
     Active Substance: APIXABAN
     Indication: Product used for unknown indication
     Dosage: 10 MILLIGRAM, BID
     Route: 048
     Dates: start: 20210518
  21. AMLODIPINE [Concomitant]
     Active Substance: AMLODIPINE BESYLATE
     Indication: Product used for unknown indication
     Dosage: 5 MILLIGRAM, QD
     Route: 048
     Dates: start: 20210518, end: 20211019
  22. LANSOPRAZOLE [Concomitant]
     Active Substance: LANSOPRAZOLE
     Indication: Prophylaxis
     Dosage: 15 MILLIGRAM, QD
     Route: 048
     Dates: start: 20210520
  23. LAGNOS NF [Concomitant]
     Indication: Hepatic function abnormal
     Route: 048
  24. URSO [Concomitant]
     Active Substance: URSODIOL
     Indication: Hepatic function abnormal
     Route: 065
  25. GLYCYRON 2GO [Concomitant]
     Indication: Hepatic function abnormal
     Route: 065
  26. LANSOPRAZOLE [Concomitant]
     Active Substance: LANSOPRAZOLE
     Indication: Prophylaxis
     Route: 048

REACTIONS (27)
  - Interstitial lung disease [Recovered/Resolved]
  - Malignant neoplasm progression [Unknown]
  - Hypothyroidism [Not Recovered/Not Resolved]
  - Renal impairment [Recovered/Resolved]
  - Diabetes mellitus [Not Recovered/Not Resolved]
  - Myocarditis [Not Recovered/Not Resolved]
  - Hypopituitarism [Not Recovered/Not Resolved]
  - Pyelonephritis [Recovering/Resolving]
  - Adrenal insufficiency [Recovering/Resolving]
  - Cardiac failure [Not Recovered/Not Resolved]
  - Adrenocorticotropic hormone deficiency [Not Recovered/Not Resolved]
  - Eosinophil count increased [Recovering/Resolving]
  - Malnutrition [Not Recovered/Not Resolved]
  - Leukocytosis [Recovered/Resolved]
  - Anaemia [Not Recovered/Not Resolved]
  - Neutrophil count increased [Recovered/Resolved]
  - Monocyte count decreased [Recovered/Resolved]
  - Blood creatine phosphokinase decreased [Recovered/Resolved]
  - Sarcopenia [Recovered/Resolved]
  - Pruritus [Not Recovered/Not Resolved]
  - Pain [Not Recovered/Not Resolved]
  - Malaise [Not Recovered/Not Resolved]
  - Hepatic function abnormal [Recovered/Resolved]
  - Electrolyte imbalance [Recovered/Resolved]
  - Lymphopenia [Recovered/Resolved]
  - Lipid metabolism disorder [Recovering/Resolving]
  - Dyslipidaemia [Recovering/Resolving]

NARRATIVE: CASE EVENT DATE: 20210520
